FAERS Safety Report 19135446 (Version 1)
Quarter: 2021Q2

REPORT INFORMATION
  Report Type: Spontaneous
  Country: US (occurrence: US)
  Receive Date: 20210414
  Receipt Date: 20210414
  Transmission Date: 20210717
  Serious: Yes (Hospitalization, Other)
  Sender: FDA-Public Use
  Company Number: US-SA-2021SA114030

PATIENT
  Age: 77 Year
  Sex: Male

DRUGS (1)
  1. LANTUS [Suspect]
     Active Substance: INSULIN GLARGINE
     Indication: TYPE 2 DIABETES MELLITUS
     Dosage: 28 IU, QD (BETWEEN BREAKFAST + LUNCH)
     Route: 065
     Dates: start: 2020

REACTIONS (3)
  - Product storage error [Unknown]
  - Pulmonary embolism [Unknown]
  - Pneumonia [Unknown]
